FAERS Safety Report 5015329-6 (Version None)
Quarter: 2006Q2

REPORT INFORMATION
  Report Type: 
  Country: None (occurrence: None)
  Receive Date: 20060601
  Receipt Date: 20060524
  Transmission Date: 20061013
  Serious: Yes (Death)
  Sender: FDA-Public Use
  Company Number: NL-AVENTIS-200615532GDDC

PATIENT
  Age: 62 Year
  Sex: Male

DRUGS (5)
  1. DOCETAXEL [Suspect]
     Indication: PROSTATE CANCER
     Route: 042
     Dates: start: 20060309, end: 20060511
  2. RISEDRONATE [Suspect]
     Indication: PROSTATE CANCER
     Route: 048
     Dates: start: 20060309, end: 20060520
  3. PREDNISONE [Suspect]
     Indication: PROSTATE CANCER
     Route: 048
     Dates: start: 20060309, end: 20060520
  4. OMNIC [Concomitant]
     Dates: start: 20050422, end: 20060520
  5. ZOLADEX [Concomitant]
     Dates: start: 20030901, end: 20060320

REACTIONS (6)
  - CARDIAC ARREST [None]
  - CARDIOVASCULAR DISORDER [None]
  - CIRCULATORY COLLAPSE [None]
  - DYSPNOEA [None]
  - HEART RATE INCREASED [None]
  - RECTAL HAEMORRHAGE [None]
